FAERS Safety Report 8822214 (Version 2)
Quarter: 2012Q4

REPORT INFORMATION
  Report Type: 
  Country: US (occurrence: US)
  Receive Date: 20121003
  Receipt Date: 20121025
  Transmission Date: 20130627
  Serious: No
  Sender: FDA-Public Use
  Company Number: US-PFIZER INC-2012242790

PATIENT
  Age: 36 Year

DRUGS (1)
  1. NEURONTIN [Suspect]
     Dosage: 1200 mg, 3x/day
     Route: 048

REACTIONS (1)
  - Headache [Unknown]
